FAERS Safety Report 23904338 (Version 1)
Quarter: 2024Q2

REPORT INFORMATION
  Report Type: Report from Study
  Country: GR (occurrence: GR)
  Receive Date: 20240527
  Receipt Date: 20240527
  Transmission Date: 20240716
  Serious: Yes (Life-Threatening, Hospitalization)
  Sender: FDA-Public Use
  Company Number: GR-Merck Healthcare KGaA-2023462427

PATIENT
  Age: 67 Year
  Sex: Female
  Weight: 85 kg

DRUGS (4)
  1. INLYTA [Suspect]
     Active Substance: AXITINIB
     Indication: Renal cell carcinoma
     Dosage: UNK
  2. BAVENCIO [Suspect]
     Active Substance: AVELUMAB
     Indication: Renal cell carcinoma
     Dosage: UNK
     Dates: start: 20230322
  3. BAVENCIO [Suspect]
     Active Substance: AVELUMAB
     Dosage: UNK
     Dates: start: 20230614
  4. INNOHEP [Concomitant]
     Active Substance: TINZAPARIN SODIUM
     Indication: Prophylaxis
     Dosage: 4.5 IU, 1X/DAY
     Dates: start: 20230628

REACTIONS (1)
  - Hypertension [Recovered/Resolved]

NARRATIVE: CASE EVENT DATE: 20230710
